FAERS Safety Report 23191353 (Version 1)
Quarter: 2023Q4

REPORT INFORMATION
  Report Type: Spontaneous
  Country: DE (occurrence: DE)
  Receive Date: 20231116
  Receipt Date: 20231116
  Transmission Date: 20240109
  Serious: Yes (Other)
  Sender: FDA-Public Use
  Company Number: DE-SUN PHARMACEUTICAL INDUSTRIES LTD-2023RR-418139

PATIENT
  Age: 46 Year
  Sex: Male

DRUGS (1)
  1. FINGOLIMOD [Suspect]
     Active Substance: FINGOLIMOD
     Indication: Multiple sclerosis
     Dosage: UNK
     Route: 065

REACTIONS (10)
  - Skin lesion [Unknown]
  - Monkeypox [Unknown]
  - Lymphopenia [Unknown]
  - Urinary retention [Recovering/Resolving]
  - Haematuria [Recovering/Resolving]
  - Proctitis [Recovering/Resolving]
  - Gastrointestinal haemorrhage [Recovering/Resolving]
  - Cellulitis [Recovering/Resolving]
  - Lymphadenopathy [Recovering/Resolving]
  - Hyperbilirubinaemia [Recovering/Resolving]
